FAERS Safety Report 11705991 (Version 2)
Quarter: 2015Q4

REPORT INFORMATION
  Report Type: Spontaneous
  Country: US (occurrence: US)
  Receive Date: 20151106
  Receipt Date: 20151110
  Transmission Date: 20160304
  Serious: Yes (Life-Threatening, Hospitalization, Other)
  Sender: FDA-Public Use
  Company Number: US-009507513-1511USA002231

PATIENT
  Age: 68 Year
  Sex: Male

DRUGS (1)
  1. INTEGRILIN [Suspect]
     Active Substance: EPTIFIBATIDE
     Indication: ACUTE CORONARY SYNDROME
     Dosage: UNK
     Dates: start: 20150822, end: 2015

REACTIONS (4)
  - Swelling [Recovering/Resolving]
  - Dyspnoea [Recovering/Resolving]
  - Myocardial infarction [Recovering/Resolving]
  - Internal haemorrhage [Recovering/Resolving]

NARRATIVE: CASE EVENT DATE: 20150822
